FAERS Safety Report 7187632-5 (Version None)
Quarter: 2010Q4

REPORT INFORMATION
  Report Type: 
  Country: None (occurrence: None)
  Receive Date: 20101222
  Receipt Date: 20100701
  Transmission Date: 20110411
  Serious: No
  Sender: FDA-Public Use
  Company Number: US-AMGEN-KDL421826

PATIENT

DRUGS (9)
  1. ENBREL [Suspect]
     Indication: PRODUCT USED FOR UNKNOWN INDICATION
     Dosage: 50 MG, QWK
     Route: 058
  2. MONTELUKAST [Concomitant]
     Dosage: 10 MG, UNK
  3. FUROSEMIDE [Concomitant]
     Dosage: 40 MG, UNK
  4. LEVOTHYROXINE SODIUM [Concomitant]
     Dosage: 88 A?G, UNK
  5. LISINOPRIL [Concomitant]
     Dosage: 10 MG, UNK
  6. ESOMEPRAZOLE MAGNESIUM [Concomitant]
     Dosage: 40 MG, UNK
  7. CALCIUM/VITAMIN D [Concomitant]
     Dosage: UNK UNK, UNK
  8. FLUTICASONE PROPIONATE [Concomitant]
     Dosage: 110 A?G, UNK
  9. POTASSIUM CHLORIDE [Concomitant]
     Dosage: UNK UNK, UNK

REACTIONS (3)
  - INJECTION SITE ERYTHEMA [None]
  - INJECTION SITE PRURITUS [None]
  - INJECTION SITE REACTION [None]
